FAERS Safety Report 8170756 (Version 2)
Quarter: 2012Q4

REPORT INFORMATION
  Report Type: Report from Study
  Country: PK (occurrence: PK)
  Receive Date: 20111006
  Receipt Date: 20121111
  Transmission Date: 20130627
  Serious: Yes (Death, Other)
  Sender: FDA-Public Use
  Company Number: PHHY2011PK86273

PATIENT
  Age: 58 Year
  Sex: Female
  Weight: 105 kg

DRUGS (2)
  1. VALSARTAN, AMLODIPINE [Suspect]
     Dosage: UNK UKN, UNK
     Route: 048
     Dates: end: 20101206
  2. ATENOLOL [Concomitant]
     Indication: HYPERTENSION
     Dosage: 25 mg, BID
     Dates: start: 20101026

REACTIONS (4)
  - Myocardial ischaemia [Fatal]
  - Blood urea increased [Unknown]
  - Blood glucose increased [Unknown]
  - Microalbuminuria [Unknown]
